FAERS Safety Report 24064570 (Version 1)
Quarter: 2024Q3

REPORT INFORMATION
  Report Type: Spontaneous
  Country: US (occurrence: US)
  Receive Date: 20240709
  Receipt Date: 20240709
  Transmission Date: 20241016
  Serious: Yes (Hospitalization)
  Sender: SCILEX PHARMACEUTICALS
  Company Number: SCLX2400184

PATIENT
  Sex: Female

DRUGS (4)
  1. ZTLIDO [Suspect]
     Active Substance: LIDOCAINE
     Indication: Procedural pain
     Dosage: PUT ON FOR 12 HRS, TAKES OFF, CLEANS THEN PUT ANOTHER PATCH FOR 12 HOURS
     Route: 061
     Dates: start: 2023, end: 202312
  2. ZTLIDO [Suspect]
     Active Substance: LIDOCAINE
     Indication: Arthralgia
     Dosage: PUT ON FOR 12 HRS, TAKES OFF, CLEANS THEN PUT ANOTHER PATCH FOR 12 HOURS
     Route: 061
     Dates: start: 2024
  3. ZTLIDO [Suspect]
     Active Substance: LIDOCAINE
     Indication: Neck pain
  4. HYDROCODONE [Concomitant]
     Active Substance: HYDROCODONE
     Indication: Pain
     Dosage: UNK
     Route: 065

REACTIONS (13)
  - Gastric operation [Recovered/Resolved]
  - Fall [Unknown]
  - Balance disorder [Not Recovered/Not Resolved]
  - Dizziness [Not Recovered/Not Resolved]
  - Underdose [Unknown]
  - Product closure removal difficult [Unknown]
  - Product adhesion issue [Unknown]
  - Product communication issue [Unknown]
  - Product use complaint [Unknown]
  - Inappropriate schedule of product administration [Unknown]
  - Product packaging difficult to open [Unknown]
  - Product availability issue [Unknown]
  - Off label use [Unknown]

NARRATIVE: CASE EVENT DATE: 20230101
